FAERS Safety Report 6911371-6 (Version None)
Quarter: 2010Q3

REPORT INFORMATION
  Report Type: 
  Country: None (occurrence: None)
  Receive Date: 20100806
  Receipt Date: 20100804
  Transmission Date: 20110219
  Serious: Yes (Other)
  Sender: FDA-Public Use
  Company Number: US-BRISTOL-MYERS SQUIBB COMPANY-15225022

PATIENT
  Age: 48 Year
  Sex: Female

DRUGS (2)
  1. ABILIFY [Suspect]
     Dosage: INTIALLY 5MG
     Dates: end: 20100719
  2. CITALOPRAM [Concomitant]
     Dosage: REDUCED TO 10MG
     Dates: start: 20100301

REACTIONS (4)
  - FORMICATION [None]
  - MANIA [None]
  - SOMNOLENCE [None]
  - TACHYPHRENIA [None]
